FAERS Safety Report 9593902 (Version 2)
Quarter: 2013Q4

REPORT INFORMATION
  Report Type: Spontaneous
  Country: US (occurrence: None)
  Receive Date: 20131002
  Receipt Date: 20131211
  Transmission Date: 20140711
  Serious: Yes (Hospitalization)
  Sender: FDA-Public Use
  Company Number: AUR-APL-2013-08086

PATIENT
  Age: 57 Year
  Sex: Female
  Weight: 76.2 kg

DRUGS (9)
  1. LISINOPRIL (LISINOPRIL) [Suspect]
     Indication: HYPERTENSION
     Route: 048
     Dates: start: 2010
  2. ATENOLOL (ATENOLOL) [Suspect]
     Indication: HYPERTENSION
     Route: 048
     Dates: start: 1996
  3. OMEPRAZOLE (OMEPRAZOLE) [Suspect]
     Indication: GASTROOESOPHAGEAL REFLUX DISEASE
     Route: 048
     Dates: start: 201306
  4. SEROQUEL [Suspect]
     Indication: BIPOLAR DISORDER
     Route: 048
     Dates: end: 201306
  5. ULTRAM (ULTRACET) [Concomitant]
  6. MELOXICAM (MELOXICAM) [Concomitant]
  7. LEVOTHYROXINE (LEVOTHYROXINE) [Concomitant]
  8. FLUOXETINE (FLUOXETINE) [Concomitant]
  9. DEPAKOTE (VALPROATE SEMISODIUM) [Suspect]
     Indication: PRODUCT USED FOR UNKNOWN INDICATION
     Dates: start: 20131013

REACTIONS (17)
  - Disturbance in social behaviour [None]
  - Tachyphrenia [None]
  - Hypothyroidism [None]
  - Spinal column stenosis [None]
  - Neuralgia [None]
  - Neuropathy peripheral [None]
  - Paraesthesia [None]
  - Hypoaesthesia [None]
  - Asthenia [None]
  - Malaise [None]
  - Insomnia [None]
  - Decreased appetite [None]
  - Anxiety [None]
  - Head discomfort [None]
  - Treatment noncompliance [None]
  - Drug ineffective [None]
  - Nerve compression [None]
